FAERS Safety Report 24721565 (Version 1)
Quarter: 2024Q4

REPORT INFORMATION
  Report Type: Spontaneous
  Country: US (occurrence: US)
  Receive Date: 20241211
  Receipt Date: 20241211
  Transmission Date: 20250115
  Serious: No
  Sender: BRISTOL-MYERS SQUIBB COMPANY
  Company Number: US-BRISTOL-MYERS SQUIBB COMPANY-2024-192818

PATIENT
  Age: 62 Year
  Sex: Female

DRUGS (1)
  1. KRAZATI [Suspect]
     Active Substance: ADAGRASIB
     Indication: Product used for unknown indication
     Dosage: DOSE : 200MG;     FREQ : TAKE 3 TABLETS BY MOUTH TWICE A DAY WITH OR WITHOUT FOOD
     Route: 048

REACTIONS (1)
  - Hypotension [Unknown]
